FAERS Safety Report 9477779 (Version 1)
Quarter: 2013Q3

REPORT INFORMATION
  Report Type: Spontaneous
  Country: FR (occurrence: FR)
  Receive Date: 20130827
  Receipt Date: 20130827
  Transmission Date: 20140515
  Serious: Yes (Hospitalization)
  Sender: FDA-Public Use
  Company Number: FR-ROCHE-1266466

PATIENT
  Age: 45 Year
  Sex: Female

DRUGS (2)
  1. ROACTEMRA [Suspect]
     Indication: STILL^S DISEASE ADULT ONSET
     Route: 041
     Dates: start: 20130709, end: 20130806
  2. ROACTEMRA [Suspect]
     Route: 041
     Dates: start: 20130806

REACTIONS (3)
  - Pyrexia [Recovered/Resolved]
  - Chills [Recovered/Resolved]
  - Hypotension [Recovered/Resolved]
